FAERS Safety Report 11844536 (Version 1)
Quarter: 2015Q4

REPORT INFORMATION
  Report Type: Spontaneous
  Country: US (occurrence: None)
  Receive Date: 20151216
  Receipt Date: 20151216
  Transmission Date: 20160305
  Serious: Yes (Life-Threatening)
  Sender: FDA-Public Use
  Company Number: None

PATIENT
  Age: 52 Year
  Sex: Male
  Weight: 51.6 kg

DRUGS (1)
  1. ALTEPLASE [Suspect]
     Active Substance: ALTEPLASE
     Indication: CEREBROVASCULAR ACCIDENT
     Dosage: 4.6 MG (0.09 MG/KG BOLUS) ONCE IV
     Route: 042
     Dates: start: 20151121

REACTIONS (6)
  - Tracheostomy [None]
  - Face oedema [None]
  - Angioedema [None]
  - Periorbital oedema [None]
  - Endotracheal intubation complication [None]
  - Swollen tongue [None]

NARRATIVE: CASE EVENT DATE: 20151121
